FAERS Safety Report 8737979 (Version 5)
Quarter: 2015Q3

REPORT INFORMATION
  Report Type: Spontaneous
  Country: US (occurrence: US)
  Receive Date: 20120823
  Receipt Date: 20150730
  Transmission Date: 20151125
  Serious: Yes (Hospitalization, Other)
  Sender: FDA-Public Use
  Company Number: US-009507513-1208USA004585

PATIENT
  Sex: Male
  Weight: 71.66 kg

DRUGS (7)
  1. FINASTERIDE. [Suspect]
     Active Substance: FINASTERIDE
     Indication: BENIGN PROSTATIC HYPERPLASIA
     Dosage: 5 MG, UNK
     Route: 048
     Dates: start: 2007, end: 2009
  2. FLOMAX [Suspect]
     Active Substance: TAMSULOSIN HYDROCHLORIDE
     Dosage: UNK
     Dates: start: 200906
  3. FINASTERIDE. [Suspect]
     Active Substance: FINASTERIDE
     Indication: BENIGN PROSTATIC HYPERPLASIA
     Dosage: 5 MG, UNK
     Route: 048
     Dates: start: 20080521, end: 20091001
  4. FINASTERIDE. [Suspect]
     Active Substance: FINASTERIDE
     Indication: BENIGN PROSTATIC HYPERPLASIA
     Dosage: 5 MG, UNK
     Route: 048
     Dates: start: 20060629, end: 20080317
  5. PROSCAR [Suspect]
     Active Substance: FINASTERIDE
     Indication: BENIGN PROSTATIC HYPERPLASIA
     Dosage: 5 MG, UNK
     Route: 048
     Dates: start: 1995, end: 2009
  6. FLOMAX [Suspect]
     Active Substance: TAMSULOSIN HYDROCHLORIDE
     Indication: BENIGN PROSTATIC HYPERPLASIA
     Dosage: 0.4 MG, UNK
     Route: 048
     Dates: start: 2007, end: 20090421
  7. FINASTERIDE. [Suspect]
     Active Substance: FINASTERIDE
     Indication: BENIGN PROSTATIC HYPERPLASIA
     Dosage: 5 MG, UNK
     Route: 048
     Dates: start: 20080417, end: 200805

REACTIONS (25)
  - Testicular pain [Recovered/Resolved]
  - Testicular atrophy [Not Recovered/Not Resolved]
  - Testicular pain [Recovered/Resolved]
  - Malaise [Unknown]
  - Medical device complication [Unknown]
  - Pain management [Unknown]
  - Sexual dysfunction [Unknown]
  - Mumps [Unknown]
  - Dysuria [Unknown]
  - Cholecystectomy [Unknown]
  - Urinary retention postoperative [Recovered/Resolved]
  - Lymphadenectomy [Unknown]
  - Hypothyroidism [Unknown]
  - Urine flow decreased [Not Recovered/Not Resolved]
  - Abdominal mass [Unknown]
  - Cognitive disorder [Unknown]
  - Prostatic specific antigen abnormal [Recovered/Resolved]
  - Intervertebral disc disorder [Not Recovered/Not Resolved]
  - Suprapubic pain [Unknown]
  - Hypertension [Unknown]
  - Hernia [Unknown]
  - Prostate cancer [Unknown]
  - Influenza [Unknown]
  - Radical prostatectomy [Recovering/Resolving]
  - Erectile dysfunction [Not Recovered/Not Resolved]

NARRATIVE: CASE EVENT DATE: 2008
